FAERS Safety Report 7458258-0 (Version None)
Quarter: 2011Q2

REPORT INFORMATION
  Report Type: 
  Country: None (occurrence: None)
  Receive Date: 20110504
  Receipt Date: 20110420
  Transmission Date: 20111010
  Serious: Yes (Hospitalization)
  Sender: FDA-Public Use
  Company Number: US-JNJFOC-20101007994

PATIENT
  Sex: Male
  Weight: 44.5 kg

DRUGS (3)
  1. MERCAPTOPURINE [Concomitant]
  2. MESALAMINE [Concomitant]
     Route: 048
  3. INFLIXIMAB [Suspect]
     Indication: CROHN'S DISEASE
     Route: 042

REACTIONS (1)
  - ILEAL STENOSIS [None]
